FAERS Safety Report 6366874-2 (Version None)
Quarter: 2009Q3

REPORT INFORMATION
  Report Type: 
  Country: None (occurrence: None)
  Receive Date: 20090921
  Receipt Date: 20090915
  Transmission Date: 20100115
  Serious: Yes (Other)
  Sender: FDA-Public Use
  Company Number: JP-AVENTIS-200912343JP

PATIENT
  Age: 60 Year
  Sex: Female
  Weight: 48 kg

DRUGS (2)
  1. ALLEGRA [Suspect]
     Indication: ECZEMA
     Dosage: DOSE: 1 TABLET
     Route: 048
     Dates: start: 20090729, end: 20090803
  2. DERMATOLOGICALS [Concomitant]
     Indication: ECZEMA

REACTIONS (2)
  - ERYTHEMA MULTIFORME [None]
  - OFF LABEL USE [None]
